FAERS Safety Report 7078441-6 (Version None)
Quarter: 2010Q4

REPORT INFORMATION
  Report Type: 
  Country: None (occurrence: None)
  Receive Date: 20101101
  Receipt Date: 20101101
  Transmission Date: 20110411
  Serious: No
  Sender: FDA-Public Use
  Company Number: None

PATIENT
  Sex: Male
  Weight: 90.7194 kg

DRUGS (1)
  1. TESTOSTERONE CYPIONATE [Suspect]
     Indication: PITUITARY CYST
     Dosage: 200MG./ML EVERY 2 WEEKS IM
     Route: 030
     Dates: start: 20101022

REACTIONS (2)
  - DEVICE LEAKAGE [None]
  - NEEDLE ISSUE [None]
